FAERS Safety Report 14570815 (Version 1)
Quarter: 2018Q1

REPORT INFORMATION
  Report Type: Report from Study
  Country: RO (occurrence: RO)
  Receive Date: 20180226
  Receipt Date: 20180226
  Transmission Date: 20180509
  Serious: Yes (Death)
  Sender: FDA-Public Use
  Company Number: RO-ASTRAZENECA-2018SE23270

PATIENT
  Sex: Male

DRUGS (1)
  1. CASODEX [Suspect]
     Active Substance: BICALUTAMIDE
     Route: 048

REACTIONS (1)
  - Death [Fatal]
